FAERS Safety Report 12683371 (Version 1)
Quarter: 2016Q3

REPORT INFORMATION
  Report Type: Spontaneous
  Country: US (occurrence: None)
  Receive Date: 20160824
  Receipt Date: 20160824
  Transmission Date: 20161109
  Serious: No
  Sender: FDA-Public Use
  Company Number: None

PATIENT

DRUGS (2)
  1. ADRENALIN [Suspect]
     Active Substance: EPINEPHRINE
     Route: 058
  2. ADRENALIN CHLORIDE SOLUTION EPINEPHRINE PAR PHARMACEUTICAL, INC. [Suspect]
     Active Substance: EPINEPHRINE HYDROCHLORIDE
     Route: 045

REACTIONS (1)
  - Product packaging confusion [None]
